FAERS Safety Report 21438301 (Version 2)
Quarter: 2022Q4

REPORT INFORMATION
  Report Type: Spontaneous
  Country: RU (occurrence: RU)
  Receive Date: 20221011
  Receipt Date: 20221025
  Transmission Date: 20230112
  Serious: Yes (Hospitalization)
  Sender: FDA-Public Use
  Company Number: RU-NOVARTISPH-NVSC2022RU228545

PATIENT
  Sex: Female

DRUGS (2)
  1. LAPATINIB [Suspect]
     Active Substance: LAPATINIB
     Indication: Product used for unknown indication
     Dosage: 1500 MG, QD
     Route: 048
     Dates: start: 20140124
  2. LETROZOLE [Suspect]
     Active Substance: LETROZOLE
     Indication: Product used for unknown indication
     Dosage: UNK
     Route: 065
     Dates: start: 2014

REACTIONS (1)
  - Sarcoidosis [Recovered/Resolved]

NARRATIVE: CASE EVENT DATE: 20160201
